FAERS Safety Report 8806825 (Version 1)
Quarter: 2012Q4

REPORT INFORMATION
  Report Type: 
  Country: US (occurrence: US)
  Receive Date: 20120925
  Receipt Date: 20120925
  Transmission Date: 20130627
  Serious: Yes (Other)
  Sender: FDA-Public Use
  Company Number: US-ELI_LILLY_AND_COMPANY-US201209005241

PATIENT
  Sex: Male
  Weight: 114 kg

DRUGS (3)
  1. EFFIENT [Suspect]
     Dosage: 5 mg, bid
     Route: 065
  2. ASPIRIN [Concomitant]
     Dosage: 81 mg, qd
     Route: 065
  3. CILOSTAZOL [Concomitant]
     Dosage: 100 mg, bid
     Route: 065

REACTIONS (1)
  - Leg amputation [Unknown]
